FAERS Safety Report 9365054 (Version 1)
Quarter: 2013Q2

REPORT INFORMATION
  Report Type: Spontaneous
  Country: FR (occurrence: FR)
  Receive Date: 20130624
  Receipt Date: 20130624
  Transmission Date: 20140414
  Serious: Yes (Hospitalization)
  Sender: FDA-Public Use
  Company Number: FR-PFIZER INC-2013184327

PATIENT
  Age: 58 Year
  Sex: Female

DRUGS (7)
  1. TAHOR [Suspect]
     Dosage: UNK
     Route: 048
     Dates: start: 2009, end: 20121213
  2. TARCEVA [Suspect]
     Indication: BRONCHIAL CARCINOMA
     Dosage: 150 MG, DAILY
     Route: 048
     Dates: start: 20121114, end: 20121213
  3. KARDEGIC [Concomitant]
  4. AMLOR [Concomitant]
  5. HALDOL [Concomitant]
  6. NOZINAN [Concomitant]
  7. ANAFRANIL [Concomitant]

REACTIONS (1)
  - Interstitial lung disease [Recovered/Resolved]
